FAERS Safety Report 6813268-9 (Version None)
Quarter: 2010Q3

REPORT INFORMATION
  Report Type: 
  Country: None (occurrence: None)
  Receive Date: 20100701
  Receipt Date: 20100622
  Transmission Date: 20110219
  Serious: Yes (Hospitalization, Other)
  Sender: FDA-Public Use
  Company Number: US-PFIZER INC-2010078632

PATIENT
  Sex: Female
  Weight: 113.38 kg

DRUGS (9)
  1. ZOLOFT [Suspect]
     Indication: DEPRESSION
     Dosage: UNK, DAILY
     Route: 048
     Dates: start: 20100501, end: 20100601
  2. LAMICTAL [Suspect]
     Indication: DEPRESSED MOOD
     Dosage: UNK
     Route: 048
     Dates: start: 20100501, end: 20100601
  3. LEVOTHYROXINE [Concomitant]
     Dosage: UNK
  4. MONTELUKAST [Concomitant]
     Dosage: UNK
  5. PROTONIX [Concomitant]
     Dosage: UNK
  6. PREDNISONE [Concomitant]
     Dosage: 10 MG, DAILY
  7. VALIUM [Concomitant]
     Indication: ANXIETY
     Dosage: UNK
  8. VALIUM [Concomitant]
     Indication: PAIN
  9. VALIUM [Concomitant]
     Indication: MUSCLE TIGHTNESS

REACTIONS (2)
  - GAIT DISTURBANCE [None]
  - SUICIDAL IDEATION [None]
